FAERS Safety Report 8941545 (Version 2)
Quarter: 2012Q4

REPORT INFORMATION
  Report Type: 
  Country: US (occurrence: US)
  Receive Date: 20121203
  Receipt Date: 20121221
  Transmission Date: 20130627
  Serious: No
  Sender: FDA-Public Use
  Company Number: US-009507513-1211USA012654

PATIENT
  Sex: Female

DRUGS (3)
  1. VICTRELIS [Suspect]
     Indication: HEPATITIS C
     Dosage: 200 mg, qd 3 times daily
     Route: 048
     Dates: end: 20121129
  2. PEGASYS [Suspect]
     Dosage: UNK
     Dates: end: 20121129
  3. RIBASPHERE [Suspect]
     Dosage: UNK
     Dates: end: 20121129

REACTIONS (4)
  - Mood swings [Unknown]
  - Dizziness [Unknown]
  - Decreased appetite [Unknown]
  - Vitreous floaters [Unknown]
